FAERS Safety Report 10230883 (Version 1)
Quarter: 2014Q2

REPORT INFORMATION
  Report Type: Spontaneous
  Country: US (occurrence: None)
  Receive Date: 20140610
  Receipt Date: 20140610
  Transmission Date: 20141212
  Serious: Yes (Other)
  Sender: FDA-Public Use
  Company Number: None

PATIENT
  Age: 66 Year
  Sex: Female
  Weight: 68.95 kg

DRUGS (1)
  1. RECLAST [Suspect]
     Indication: OSTEOPENIA
     Dosage: ONCE A YEAR
     Dates: start: 20131113

REACTIONS (11)
  - Neck pain [None]
  - Back pain [None]
  - Back pain [None]
  - Bedridden [None]
  - Arthralgia [None]
  - Pain in extremity [None]
  - Arthralgia [None]
  - Paraesthesia [None]
  - Fear [None]
  - Gastrointestinal disorder [None]
  - Joint crepitation [None]
